FAERS Safety Report 4399077-1 (Version None)
Quarter: 2004Q2

REPORT INFORMATION
  Report Type: 
  Country: None (occurrence: None)
  Receive Date: 20040621
  Receipt Date: 20031209
  Transmission Date: 20050107
  Serious: Yes (Death)
  Sender: FDA-Public Use
  Company Number: 2012238

PATIENT
  Age: 17 Year
  Sex: Male
  Weight: 56.2 kg

DRUGS (7)
  1. OXYCONTIN [Suspect]
     Dosage: ORAL
     Route: 048
  2. HYDROCODONE BITARTRATE [Suspect]
  3. METHYLENEDIOXYAMPHETAMINE (METHYLENEDIOXYAMPHETAMINE) [Suspect]
  4. CANNABIS (CANNABIS) [Suspect]
  5. METAMFETAMINE (METAMFETAMINE) [Suspect]
  6. CAFFEINE (CAFFEINE) [Suspect]
  7. ATRACURIUM BESYLATE [Suspect]

REACTIONS (2)
  - ACCIDENTAL OVERDOSE [None]
  - MULTIPLE DRUG OVERDOSE [None]
